FAERS Safety Report 5883122-8 (Version None)
Quarter: 2008Q3

REPORT INFORMATION
  Report Type: 
  Country: None (occurrence: None)
  Receive Date: 20080913
  Receipt Date: 20080829
  Transmission Date: 20090109
  Serious: No
  Sender: FDA-Public Use
  Company Number: US-ABBOTT-08P-163-0473335-00

PATIENT
  Sex: Male
  Weight: 68.1 kg

DRUGS (1)
  1. HUMIRA [Suspect]
     Indication: ANKYLOSING SPONDYLITIS

REACTIONS (4)
  - FATIGUE [None]
  - SKIN WARM [None]
  - SWELLING [None]
  - URTICARIA [None]
